FAERS Safety Report 4501698-X (Version None)
Quarter: 2004Q3

REPORT INFORMATION
  Report Type: 
  Country: None (occurrence: None)
  Receive Date: 20040927
  Receipt Date: 20040708
  Transmission Date: 20050211
  Serious: No
  Sender: FDA-Public Use
  Company Number: USA040258697

PATIENT
  Sex: Female

DRUGS (16)
  1. STRATTERA [Suspect]
     Indication: DISTURBANCE IN ATTENTION
     Dosage: 40 MG/3 DAY
     Route: 048
     Dates: start: 20031101
  2. WELLBUTRIN [Concomitant]
  3. TOPAMAX [Concomitant]
  4. LEXAPRO [Concomitant]
  5. SYNTHROID [Concomitant]
  6. ACETAMINOPHEN AND HYDROCODONE BITARTRATE [Concomitant]
  7. MIACALCIN [Concomitant]
  8. TAMOXIFEN CITRATE [Concomitant]
  9. HYDROXYZINE [Concomitant]
  10. POTASSIUM [Concomitant]
  11. ZYRTEC [Concomitant]
  12. CLARITIN [Concomitant]
  13. PEPCID [Concomitant]
  14. VITAMINS NOS [Concomitant]
  15. FOLIC ACID [Concomitant]
  16. IRON [Concomitant]

REACTIONS (3)
  - BLOOD IRON DECREASED [None]
  - HEPATIC ENZYME INCREASED [None]
  - PRESCRIBED OVERDOSE [None]
